FAERS Safety Report 9748122 (Version 2)
Quarter: 2014Q1

REPORT INFORMATION
  Report Type: Spontaneous
  Country: US (occurrence: US)
  Receive Date: 20131212
  Receipt Date: 20140108
  Transmission Date: 20141002
  Serious: No
  Sender: FDA-Public Use
  Company Number: US-PFIZER INC-2013352738

PATIENT
  Sex: Female

DRUGS (3)
  1. CELEBREX [Suspect]
     Dosage: UNK
  2. MEDROL [Suspect]
     Dosage: UNK
  3. ZITHROMAX [Suspect]
     Dosage: UNK

REACTIONS (3)
  - Bronchitis [Unknown]
  - Sinusitis [Unknown]
  - Oropharyngeal pain [Unknown]
